FAERS Safety Report 6127388-8 (Version None)
Quarter: 2009Q1

REPORT INFORMATION
  Report Type: 
  Country: None (occurrence: None)
  Receive Date: 20090323
  Receipt Date: 20090313
  Transmission Date: 20090719
  Serious: Yes (Other)
  Sender: FDA-Public Use
  Company Number: PHHY2009CN09380

PATIENT
  Age: 42 Year
  Sex: Male

DRUGS (3)
  1. LOTENSIN [Suspect]
     Indication: HYPERTENSION
     Dosage: 10 MG, QD
     Route: 048
     Dates: start: 20060101
  2. LAMIVUDINE [Concomitant]
  3. MEDROL [Concomitant]

REACTIONS (1)
  - GINGIVAL HYPERPLASIA [None]
